FAERS Safety Report 4296373-3 (Version None)
Quarter: 2004Q1

REPORT INFORMATION
  Report Type: 
  Country: None (occurrence: None)
  Receive Date: 20040213
  Receipt Date: 20040213
  Transmission Date: 20041129
  Serious: Yes (Hospitalization)
  Sender: FDA-Public Use
  Company Number: None

PATIENT
  Sex: Female

DRUGS (18)
  1. LANOXIN [Suspect]
     Indication: ATRIAL FIBRILLATION
     Dosage: 0.125 MG PO QD [PRIOR TO ADMISSION]
     Route: 048
  2. AMIODARONE [Suspect]
     Indication: ATRIAL FIBRILLATION
     Dosage: 200 MG PO QD [PRIOR TO ADMISSION[
     Route: 048
  3. K-DUR 10 [Concomitant]
  4. RISPERDAL [Concomitant]
  5. DEPAKOTE [Concomitant]
  6. ATIVAN [Concomitant]
  7. COREG [Concomitant]
  8. ALDACTONE [Concomitant]
  9. DILANTIN [Concomitant]
  10. LISINOPRIL [Concomitant]
  11. PROTONIX [Concomitant]
  12. COLACE [Concomitant]
  13. DULCOLAX [Concomitant]
  14. TRAZODONE HCL [Concomitant]
  15. ZOLOFT [Concomitant]
  16. ASPIRIN [Concomitant]
  17. LASIX [Concomitant]
  18. SYNTHROID [Concomitant]

REACTIONS (1)
  - HEART RATE DECREASED [None]
